FAERS Safety Report 15396723 (Version 2)
Quarter: 2018Q4

REPORT INFORMATION
  Report Type: Spontaneous
  Country: US (occurrence: US)
  Receive Date: 20180918
  Receipt Date: 20181024
  Transmission Date: 20190204
  Serious: Yes (Other)
  Sender: FDA-Public Use
  Company Number: US-ASTRAZENECA-2018SF19223

PATIENT
  Age: 717 Month
  Sex: Female

DRUGS (2)
  1. TARCEVA [Concomitant]
     Active Substance: ERLOTINIB HYDROCHLORIDE
     Dates: start: 201404, end: 20161208
  2. TAGRISSO [Suspect]
     Active Substance: OSIMERTINIB
     Indication: EGFR GENE MUTATION
     Route: 048
     Dates: start: 20161213, end: 20170927

REACTIONS (6)
  - Dyspnoea [Unknown]
  - Skin laceration [Unknown]
  - Fall [Unknown]
  - Foot fracture [Unknown]
  - Fatigue [Unknown]
  - Pneumonitis [Unknown]

NARRATIVE: CASE EVENT DATE: 201709
